FAERS Safety Report 4342195-4 (Version None)
Quarter: 2004Q1

REPORT INFORMATION
  Report Type: 
  Country: None (occurrence: None)
  Receive Date: 20040329
  Receipt Date: 20031205
  Transmission Date: 20041129
  Serious: No
  Sender: FDA-Public Use
  Company Number: USA031254105

PATIENT
  Age: 33 Month
  Sex: Male

DRUGS (1)
  1. STRATTERA [Suspect]
     Indication: AUTISM
     Dates: start: 20031204

REACTIONS (5)
  - COMMUNICATION DISORDER [None]
  - DISTURBANCE IN ATTENTION [None]
  - INSOMNIA [None]
  - MEMORY IMPAIRMENT [None]
  - PSYCHOMOTOR HYPERACTIVITY [None]
